FAERS Safety Report 21201098 (Version 1)
Quarter: 2022Q3

REPORT INFORMATION
  Report Type: Spontaneous
  Country: FR (occurrence: FR)
  Receive Date: 20220811
  Receipt Date: 20220811
  Transmission Date: 20221026
  Serious: Yes (Hospitalization)
  Sender: FDA-Public Use
  Company Number: FR-BoehringerIngelheim-2021-BI-117886

PATIENT
  Sex: Female

DRUGS (4)
  1. HYDROCHLOROTHIAZIDE\TELMISARTAN [Suspect]
     Active Substance: HYDROCHLOROTHIAZIDE\TELMISARTAN
     Indication: Hypertension
     Dosage: 80/25
     Route: 048
     Dates: start: 2016, end: 20210713
  2. ALDACTONE [Concomitant]
     Active Substance: SPIRONOLACTONE
     Indication: Product used for unknown indication
  3. NEBIVOLOL [Concomitant]
     Active Substance: NEBIVOLOL
     Indication: Product used for unknown indication
  4. LERCANIDIPINE [Concomitant]
     Active Substance: LERCANIDIPINE
     Indication: Product used for unknown indication

REACTIONS (12)
  - Pancreatic disorder [Unknown]
  - Gait disturbance [Recovered/Resolved]
  - Eye pain [Recovering/Resolving]
  - Tinnitus [Recovering/Resolving]
  - Tinnitus [Recovering/Resolving]
  - Sinusitis [Not Recovered/Not Resolved]
  - Platelet count decreased [Recovering/Resolving]
  - Paraesthesia [Recovering/Resolving]
  - Tendonitis [Recovering/Resolving]
  - Headache [Not Recovered/Not Resolved]
  - Multiple allergies [Unknown]
  - Feeding disorder [Unknown]
